FAERS Safety Report 9017123 (Version 2)
Quarter: 2013Q2

REPORT INFORMATION
  Report Type: Report from Study
  Country: JP (occurrence: JP)
  Receive Date: 20130117
  Receipt Date: 20130417
  Transmission Date: 20140414
  Serious: Yes (Other)
  Sender: FDA-Public Use
  Company Number: JP-VERTEX PHARMACEUTICAL INC.-2012-020349

PATIENT
  Age: 63 Year
  Sex: Male

DRUGS (17)
  1. VX-950 (TELAPREVIR) [Suspect]
     Indication: CHRONIC HEPATITIS C
     Dosage: 2250 MG, QD
     Route: 048
     Dates: start: 20120711, end: 20120715
  2. RIBAVIRIN [Concomitant]
     Dosage: 1000 MG, QD
     Route: 048
     Dates: start: 20120711, end: 20120715
  3. PEGINTERFERON ALFA-2B [Concomitant]
     Dosage: 1.5 ?G/KG, QW
     Route: 058
     Dates: start: 20120711, end: 20120711
  4. URSO                               /00465701/ [Concomitant]
     Dosage: 600 MG, QD
     Route: 048
  5. JUVELA N [Concomitant]
     Dosage: 300 MG, UNK
     Route: 048
  6. METHYCOBAL [Concomitant]
     Dosage: 1500 ?G, QD
     Route: 048
  7. MAINTATE [Concomitant]
     Dosage: 5 MG, QD
     Route: 048
  8. ADALAT CR [Concomitant]
     Dosage: 40 MG, QD
     Route: 048
  9. DIOVAN [Concomitant]
     Dosage: 160 MG, QD
     Route: 048
  10. BAYASPIRIN [Concomitant]
     Dosage: 100 MG, QD
     Route: 048
  11. HERBESSER [Concomitant]
     Dosage: 60 MG, QD
     Route: 048
  12. CARDENALIN [Concomitant]
     Dosage: 3 MG, QD
     Route: 048
  13. CARDENALIN [Concomitant]
     Dosage: 1 MG, QD
     Route: 048
  14. ZYLORIC [Concomitant]
     Dosage: 300 MG, QD
     Route: 048
     Dates: start: 20120627, end: 20120731
  15. ALFAROL [Concomitant]
     Dosage: 1 ?G, QD
     Route: 048
     Dates: start: 20120711, end: 20120715
  16. TALION                             /01587402/ [Concomitant]
     Dosage: 10 MG, QD
     Route: 048
     Dates: start: 20120711, end: 20120713
  17. TALION                             /01587402/ [Concomitant]
     Dosage: 20 MG, QD
     Route: 048
     Dates: start: 20120714, end: 20120731

REACTIONS (1)
  - Renal impairment [Recovered/Resolved]
